FAERS Safety Report 4602578-1 (Version None)
Quarter: 2005Q1

REPORT INFORMATION
  Report Type: 
  Country: None (occurrence: None)
  Receive Date: 20050307
  Receipt Date: 20050222
  Transmission Date: 20050727
  Serious: Yes (Other)
  Sender: FDA-Public Use
  Company Number: 2005035920

PATIENT
  Age: 81 Year
  Sex: Female
  Weight: 66.2252 kg

DRUGS (9)
  1. DETROL LA [Suspect]
     Indication: POLLAKIURIA
     Dosage: 4 MG (4 MG 1 IN 1 D), ORAL
     Route: 048
     Dates: start: 20020101
  2. CIPROFLOXACIN [Suspect]
     Indication: PROPHYLAXIS
     Dosage: 250 MG (250 MG, QOD INTERVAL: EVERY OTHER DAY), ORAL
     Route: 048
     Dates: start: 20040701
  3. ENALAPRIL MALEATE [Concomitant]
  4. ATENOLOL (ANTENOLOL [Concomitant]
  5. ACETYLSALICIYLIC ACID (ACETYLSALICYLIC ACID) [Concomitant]
  6. MAGNESIUM (MAGNESIUM) [Concomitant]
  7. POLYSACCHARIDE-IRON COMPLEX (POLYSACCHARIDE-IRON COMPLEX) [Concomitant]
  8. ISOSORBIDE (ISOSORIBIDE) [Concomitant]
  9. ESOMEPRAZOLE (ESOMEPRAZOLE) [Concomitant]

REACTIONS (3)
  - ANGINA PECTORIS [None]
  - BLOOD PRESSURE INCREASED [None]
  - OBSTRUCTION [None]
